FAERS Safety Report 5844718-2 (Version None)
Quarter: 2008Q3

REPORT INFORMATION
  Report Type: 
  Country: None (occurrence: None)
  Receive Date: 20080814
  Receipt Date: 20070611
  Transmission Date: 20090109
  Serious: No
  Sender: FDA-Public Use
  Company Number: US-BAYER-US-2007-021858

PATIENT
  Age: 50 Year
  Sex: Female
  Weight: 62 kg

DRUGS (12)
  1. MAGNEVIST [Suspect]
     Indication: NUCLEAR MAGNETIC RESONANCE IMAGING BRAIN
     Dosage: UNIT DOSE: 13 ML
     Route: 042
     Dates: start: 20070611, end: 20070611
  2. ESZOPICLONE [Concomitant]
  3. PROVIGIL [Concomitant]
  4. BENTYL [Concomitant]
  5. PREMARIN [Concomitant]
  6. POTASSIUM CHLORIDE [Concomitant]
  7. TRAMADOL HCL [Concomitant]
  8. COPAXONE [Concomitant]
  9. AXERT [Concomitant]
  10. NULER [Concomitant]
  11. KEPPRA [Concomitant]
  12. MAXZIDE [Concomitant]

REACTIONS (4)
  - GENERALISED ERYTHEMA [None]
  - LIP SWELLING [None]
  - NAUSEA [None]
  - SYNCOPE [None]
